FAERS Safety Report 18238510 (Version 2)
Quarter: 2020Q3

REPORT INFORMATION
  Report Type: Spontaneous
  Country: US (occurrence: US)
  Receive Date: 20200907
  Receipt Date: 20200917
  Transmission Date: 20201103
  Serious: No
  Sender: FDA-Public Use
  Company Number: US-PFIZER INC-2020344353

PATIENT
  Age: 77 Year
  Sex: Female
  Weight: 58.97 kg

DRUGS (2)
  1. VENLAFAXINE HCL [Suspect]
     Active Substance: VENLAFAXINE HYDROCHLORIDE
     Indication: DEPRESSION
     Dosage: 300 MG, DAILY
     Route: 048
     Dates: start: 202002, end: 202005
  2. VENLAFAXINE HCL [Suspect]
     Active Substance: VENLAFAXINE HYDROCHLORIDE
     Indication: ANXIETY

REACTIONS (3)
  - Prescribed overdose [Unknown]
  - Drug ineffective [Unknown]
  - Tearfulness [Unknown]

NARRATIVE: CASE EVENT DATE: 2020
